FAERS Safety Report 6668397-X (Version None)
Quarter: 2010Q2

REPORT INFORMATION
  Report Type: 
  Country: None (occurrence: None)
  Receive Date: 20100401
  Receipt Date: 20100317
  Transmission Date: 20101027
  Serious: Yes (Life-Threatening, Hospitalization)
  Sender: FDA-Public Use
  Company Number: 2010AL001689

PATIENT
  Age: 41 Year
  Sex: Female

DRUGS (4)
  1. RAMIPRIL CAPSULES, 2.5MG (AELLC) (RAMIPRIL CAPSULES, 2.5MG (AELLC)) [Suspect]
     Indication: HYPERTENSION
     Dosage: 2.5 MG;QD;PO
     Route: 048
     Dates: start: 20100208, end: 20100212
  2. FERROUS SUL ELX [Suspect]
     Indication: ANAEMIA
     Dosage: 200 MG;PO
     Route: 048
     Dates: start: 20100208, end: 20100209
  3. CALCIUM CARBONATE [Concomitant]
  4. BENDROFLUMETHIAZIDE [Concomitant]

REACTIONS (4)
  - ANGIOEDEMA [None]
  - DRUG HYPERSENSITIVITY [None]
  - FACIAL PAIN [None]
  - NASAL CONGESTION [None]
